APPROVED DRUG PRODUCT: LEVOFLOXACIN IN DEXTROSE 5% IN PLASTIC CONTAINER
Active Ingredient: LEVOFLOXACIN
Strength: EQ 250MG/50ML (EQ 5MG/ML)
Dosage Form/Route: INJECTABLE;INJECTION
Application: A206919 | Product #001
Applicant: EUGIA PHARMA SPECIALITIES LTD
Approved: Feb 10, 2016 | RLD: No | RS: No | Type: DISCN